FAERS Safety Report 18429142 (Version 1)
Quarter: 2020Q4

REPORT INFORMATION
  Report Type: Spontaneous
  Country: US (occurrence: US)
  Receive Date: 20201026
  Receipt Date: 20201026
  Transmission Date: 20210114
  Serious: No
  Sender: FDA-Public Use
  Company Number: US-FRESENIUS KABI-FK202011170

PATIENT
  Age: 79 Year
  Sex: Female

DRUGS (2)
  1. DIPRIVAN [Suspect]
     Active Substance: PROPOFOL
     Dosage: REQUIRED TITRATION UP TO 50 MCG/KG/MIN
     Route: 042
  2. DIPRIVAN [Suspect]
     Active Substance: PROPOFOL
     Indication: SEDATIVE THERAPY
     Dosage: MAINTAINED AT 10-20 MCG/KG/MIN
     Route: 065

REACTIONS (1)
  - Therapeutic product effect decreased [Unknown]
